FAERS Safety Report 8348176-8 (Version None)
Quarter: 2012Q2

REPORT INFORMATION
  Report Type: 
  Country: None (occurrence: None)
  Receive Date: 20120509
  Receipt Date: 20100726
  Transmission Date: 20120825
  Serious: No
  Sender: FDA-Public Use
  Company Number: US-TEVA-2010003929

PATIENT
  Sex: Male
  Weight: 126.21 kg

DRUGS (4)
  1. REMICADE [Concomitant]
     Indication: RHEUMATOID ARTHRITIS
     Dates: start: 20080101
  2. NUVIGIL [Suspect]
     Indication: SLEEP APNOEA SYNDROME
     Dosage: FOR 4 OR 5 DAYS
     Route: 048
     Dates: start: 20100401, end: 20100401
  3. MIRAPEX [Concomitant]
     Indication: RESTLESS LEGS SYNDROME
  4. PERCOCET [Concomitant]
     Indication: PAIN
     Dates: start: 20060101

REACTIONS (1)
  - DRUG INEFFECTIVE [None]
